FAERS Safety Report 8962977 (Version 1)
Quarter: 2012Q4

REPORT INFORMATION
  Report Type: 
  Country: TH (occurrence: TH)
  Receive Date: 20121214
  Receipt Date: 20121214
  Transmission Date: 20130627
  Serious: Yes (Other)
  Sender: FDA-Public Use
  Company Number: TH-JNJFOC-20121204841

PATIENT

DRUGS (7)
  1. REMINYL [Suspect]
     Indication: DEMENTIA
     Dosage: average prescribed daily dose was 13.2 mg
     Route: 065
  2. ANALGESICS [Interacting]
     Indication: PRODUCT USED FOR UNKNOWN INDICATION
     Route: 065
  3. MUSCLE RELAXANTS (NOS) [Interacting]
     Indication: PRODUCT USED FOR UNKNOWN INDICATION
     Route: 065
  4. UNSPECIFIED INGREDIENT [Interacting]
     Indication: PSYCHOTIC DISORDER
     Route: 065
  5. ANTIHYPERTENSIVES [Interacting]
     Indication: HYPERTENSION
     Route: 065
  6. ANTICHOLINERGICS [Interacting]
     Indication: PRODUCT USED FOR UNKNOWN INDICATION
     Route: 065
  7. BENZODIAZEPINES NOS [Interacting]
     Indication: PRODUCT USED FOR UNKNOWN INDICATION
     Route: 065

REACTIONS (2)
  - Cognitive disorder [Unknown]
  - Drug interaction [Unknown]
